FAERS Safety Report 19586952 (Version 1)
Quarter: 2021Q3

REPORT INFORMATION
  Report Type: Spontaneous
  Country: US (occurrence: US)
  Receive Date: 20210721
  Receipt Date: 20210721
  Transmission Date: 20211014
  Serious: Yes (Hospitalization)
  Sender: FDA-Public Use
  Company Number: US-STRIDES ARCOLAB LIMITED-2020SP009703

PATIENT
  Age: 68 Year
  Sex: Male

DRUGS (1)
  1. MYCOPHENOLATE MOFETIL. [Suspect]
     Active Substance: MYCOPHENOLATE MOFETIL
     Indication: LUNG TRANSPLANT
     Dosage: 1000 MILLIGRAM, BID
     Route: 065

REACTIONS (8)
  - Colitis [Recovered/Resolved]
  - Diarrhoea haemorrhagic [Recovered/Resolved]
  - Gastric ulcer [Recovered/Resolved]
  - Inflammatory bowel disease [Recovered/Resolved]
  - Duodenal ulcer [Recovered/Resolved]
  - Oesophageal ulcer [Recovered/Resolved]
  - Abnormal faeces [Recovered/Resolved]
  - Diverticulitis [Recovered/Resolved]
